FAERS Safety Report 22357022 (Version 3)
Quarter: 2025Q2

REPORT INFORMATION
  Report Type: Spontaneous
  Country: IT (occurrence: IT)
  Receive Date: 20230523
  Receipt Date: 20250409
  Transmission Date: 20250716
  Serious: No
  Sender: ALEXION PHARMACEUTICALS
  Company Number: IT-ALXN-A202306717

PATIENT
  Age: 76 Year

DRUGS (6)
  1. SOLIRIS [Suspect]
     Active Substance: ECULIZUMAB
     Indication: Antiphospholipid syndrome
     Dosage: 1200 MG, QD
     Route: 065
  2. HEPARIN [Concomitant]
     Active Substance: HEPARIN SODIUM
     Indication: Activated partial thromboplastin time prolonged
     Route: 065
  3. HEPARIN [Concomitant]
     Active Substance: HEPARIN SODIUM
     Indication: Antiphospholipid antibodies positive
  4. METHYLPREDNISOLONE [Concomitant]
     Active Substance: METHYLPREDNISOLONE
     Indication: Activated partial thromboplastin time prolonged
     Route: 065
  5. METHYLPREDNISOLONE [Concomitant]
     Active Substance: METHYLPREDNISOLONE
     Indication: Antiphospholipid antibodies positive
     Dosage: 1 MILLIGRAM/KILOGRAM, QD
     Route: 065
  6. Immunoglobulin [Concomitant]
     Dosage: 400 MILLIGRAM/KILOGRAM, QD FOR 5 DAYS
     Route: 065

REACTIONS (2)
  - Off label use [Unknown]
  - Therapy non-responder [Unknown]
